FAERS Safety Report 11088064 (Version 2)
Quarter: 2015Q2

REPORT INFORMATION
  Report Type: Spontaneous
  Country: TT (occurrence: TT)
  Receive Date: 20150504
  Receipt Date: 20150520
  Transmission Date: 20150821
  Serious: Yes (Death, Hospitalization)
  Sender: FDA-Public Use
  Company Number: PHHY2015TT052540

PATIENT
  Age: 26 Year
  Sex: Male
  Weight: 96 kg

DRUGS (1)
  1. TASIGNA [Suspect]
     Active Substance: NILOTINIB
     Indication: CHRONIC MYELOID LEUKAEMIA
     Dosage: 400 MG, BID
     Route: 065
     Dates: start: 201407, end: 201410

REACTIONS (11)
  - Pulmonary haemorrhage [Fatal]
  - Dyspnoea [Fatal]
  - Acute myeloid leukaemia [Fatal]
  - Thrombocytosis [Unknown]
  - No therapeutic response [Unknown]
  - Gingival bleeding [Unknown]
  - Pneumonia [Fatal]
  - Malignant neoplasm progression [Fatal]
  - Leukocytosis [Unknown]
  - Anaemia [Unknown]
  - Pain [Unknown]

NARRATIVE: CASE EVENT DATE: 201501
